FAERS Safety Report 17375919 (Version 2)
Quarter: 2020Q1

REPORT INFORMATION
  Report Type: Spontaneous
  Country: US (occurrence: US)
  Receive Date: 20200206
  Receipt Date: 20200212
  Transmission Date: 20200409
  Serious: Yes (Life-Threatening, Hospitalization, Other)
  Sender: FDA-Public Use
  Company Number: US-HIKMA PHARMACEUTICALS USA INC.-US-H14001-20-00405

PATIENT
  Age: 3 Year
  Sex: Male

DRUGS (1)
  1. AMOXICILLIN. [Suspect]
     Active Substance: AMOXICILLIN
     Indication: PHARYNGITIS STREPTOCOCCAL
     Route: 065

REACTIONS (7)
  - Pneumopericardium [Recovering/Resolving]
  - Anaphylactic reaction [Recovering/Resolving]
  - Respiratory distress [Recovering/Resolving]
  - Pneumomediastinum [Recovering/Resolving]
  - Pneumothorax [Recovering/Resolving]
  - Subcutaneous emphysema [Recovering/Resolving]
  - Pulmonary interstitial emphysema syndrome [Recovering/Resolving]
